FAERS Safety Report 13898266 (Version 3)
Quarter: 2017Q4

REPORT INFORMATION
  Report Type: Report from Study
  Country: JP (occurrence: JP)
  Receive Date: 20170824
  Receipt Date: 20171117
  Transmission Date: 20180320
  Serious: Yes (Other)
  Sender: FDA-Public Use
  Company Number: JP-AMGEN-JPNNI2017128649

PATIENT
  Age: 62 Year
  Sex: Female
  Weight: 53 kg

DRUGS (28)
  1. PEGFILGRASTIM [Suspect]
     Active Substance: PEGFILGRASTIM
     Indication: COLONY STIMULATING FACTOR PROPHYLAXIS
     Dosage: 3.6 MG, UNK
     Route: 058
     Dates: start: 20170504, end: 20170504
  2. DOXORUBICIN HYDROCHLORIDE. [Suspect]
     Active Substance: DOXORUBICIN HYDROCHLORIDE
     Indication: ADULT T-CELL LYMPHOMA/LEUKAEMIA
     Dosage: 14 MG, UNK
     Route: 042
     Dates: start: 20170428, end: 20170501
  3. SODIUM RABEPRAZOLE [Concomitant]
     Active Substance: RABEPRAZOLE SODIUM
     Dosage: UNK
     Route: 048
  4. CARBOPLATIN. [Suspect]
     Active Substance: CARBOPLATIN
     Dosage: 290 MG, UNK
     Route: 065
     Dates: start: 20170524, end: 20170524
  5. XARELTO [Suspect]
     Active Substance: RIVAROXABAN
     Indication: EMBOLISM VENOUS
     Dosage: UNK
     Route: 048
     Dates: end: 20170601
  6. MECOBALAMIN [Concomitant]
     Active Substance: METHYLCOBALAMIN
     Dosage: UNK
     Route: 048
  7. ACICLOVIR [Concomitant]
     Active Substance: ACYCLOVIR
     Dosage: UNK
     Route: 048
  8. LIXIANA [Concomitant]
     Active Substance: EDOXABAN TOSYLATE
     Indication: EMBOLISM VENOUS
     Dosage: UNK
     Route: 048
  9. PEGFILGRASTIM [Suspect]
     Active Substance: PEGFILGRASTIM
     Dosage: 3.6 MG, UNK
     Route: 058
     Dates: start: 20170624, end: 20170624
  10. PREDONINE [Suspect]
     Active Substance: PREDNISOLONE
     Indication: ADULT T-CELL LYMPHOMA/LEUKAEMIA
     Dosage: 55 MG, UNK
     Route: 065
     Dates: start: 20170428, end: 20170501
  11. DOXORUBICIN HYDROCHLORIDE. [Suspect]
     Active Substance: DOXORUBICIN HYDROCHLORIDE
     Dosage: 14 MG, UNK
     Route: 042
     Dates: start: 20170519, end: 20170522
  12. ONCOVIN [Suspect]
     Active Substance: VINCRISTINE SULFATE
     Dosage: 0.5 MG, UNK
     Route: 042
     Dates: start: 20170617, end: 20170620
  13. CARBOPLATIN. [Suspect]
     Active Substance: CARBOPLATIN
     Dosage: 290 MG, UNK
     Route: 065
     Dates: start: 20170622, end: 20170622
  14. FLUCONAZOLE. [Suspect]
     Active Substance: FLUCONAZOLE
     Indication: PRODUCT USED FOR UNKNOWN INDICATION
     Dosage: UNK
     Route: 048
     Dates: end: 20170610
  15. OLOPATADINE HYDROCHLORIDE. [Concomitant]
     Active Substance: OLOPATADINE HYDROCHLORIDE
     Dosage: UNK
     Route: 048
  16. PEGFILGRASTIM [Suspect]
     Active Substance: PEGFILGRASTIM
     Dosage: 3.6 MG, UNK
     Route: 058
     Dates: start: 20170525, end: 20170525
  17. ETOPOSIDE. [Suspect]
     Active Substance: ETOPOSIDE
     Indication: ADULT T-CELL LYMPHOMA/LEUKAEMIA
     Dosage: 70 MG, UNK
     Route: 041
     Dates: start: 20170428, end: 20170501
  18. DAIPHEN [Suspect]
     Active Substance: SULFAMETHOXAZOLE\TRIMETHOPRIM
     Indication: PRODUCT USED FOR UNKNOWN INDICATION
     Dosage: UNK
     Route: 048
     Dates: end: 20170610
  19. URSODEOXYCHOLIC ACID [Concomitant]
     Active Substance: URSODIOL
     Indication: LIVER DISORDER
     Dosage: UNK
     Route: 048
  20. HEPARIN SODIUM. [Concomitant]
     Active Substance: HEPARIN SODIUM
     Indication: EMBOLISM VENOUS
     Dosage: UNK
     Route: 065
  21. ONCOVIN [Suspect]
     Active Substance: VINCRISTINE SULFATE
     Indication: ADULT T-CELL LYMPHOMA/LEUKAEMIA
     Dosage: 0.5 MG, UNK
     Route: 042
     Dates: start: 20170428, end: 20170501
  22. DOXORUBICIN HYDROCHLORIDE. [Suspect]
     Active Substance: DOXORUBICIN HYDROCHLORIDE
     Dosage: 14 MG, UNK
     Route: 042
     Dates: start: 20170617, end: 20170620
  23. ETOPOSIDE. [Suspect]
     Active Substance: ETOPOSIDE
     Dosage: 70 MG, UNK
     Route: 041
     Dates: start: 20170519, end: 20170522
  24. CARBOPLATIN. [Suspect]
     Active Substance: CARBOPLATIN
     Indication: ADULT T-CELL LYMPHOMA/LEUKAEMIA
     Dosage: 290 MG, UNK
     Route: 065
     Dates: start: 20170503, end: 20170503
  25. PREDONINE [Suspect]
     Active Substance: PREDNISOLONE
     Dosage: 55 MG, UNK
     Route: 065
     Dates: start: 20170617, end: 20170620
  26. PREDONINE [Suspect]
     Active Substance: PREDNISOLONE
     Dosage: 55 MG, UNK
     Route: 065
     Dates: start: 20170519, end: 20170522
  27. ONCOVIN [Suspect]
     Active Substance: VINCRISTINE SULFATE
     Dosage: 0.5 MG, UNK
     Route: 042
     Dates: start: 20170519, end: 20170522
  28. ETOPOSIDE. [Suspect]
     Active Substance: ETOPOSIDE
     Dosage: 70 MG, UNK
     Route: 041
     Dates: start: 20170617, end: 20170620

REACTIONS (1)
  - Liver disorder [Recovering/Resolving]

NARRATIVE: CASE EVENT DATE: 20170529
